FAERS Safety Report 16729996 (Version 2)
Quarter: 2019Q4

REPORT INFORMATION
  Report Type: Spontaneous
  Country: US (occurrence: US)
  Receive Date: 20190822
  Receipt Date: 20191025
  Transmission Date: 20200122
  Serious: No
  Sender: FDA-Public Use
  Company Number: PHEH2019US034718

PATIENT
  Sex: Female

DRUGS (3)
  1. OMEPRAZOLE SANDOZ [Suspect]
     Active Substance: OMEPRAZOLE
     Dosage: 20 MG, BID, 2 DF DAILY
     Route: 065
  2. OMEPRAZOLE SANDOZ [Suspect]
     Active Substance: OMEPRAZOLE
     Dosage: UNK
     Route: 065
  3. OMEPRAZOLE SANDOZ [Suspect]
     Active Substance: OMEPRAZOLE
     Indication: PRODUCT USED FOR UNKNOWN INDICATION
     Dosage: 40 MG, UNK
     Route: 065

REACTIONS (1)
  - Drug ineffective [Unknown]
